FAERS Safety Report 5117150-7 (Version None)
Quarter: 2006Q3

REPORT INFORMATION
  Report Type: 
  Country: None (occurrence: None)
  Receive Date: 20060927
  Receipt Date: 20060927
  Transmission Date: 20061208
  Serious: No
  Sender: FDA-Public Use
  Company Number: None

PATIENT
  Sex: Female
  Weight: 70.7611 kg

DRUGS (2)
  1. ABRAXANE 100MG/VIAL [Suspect]
     Indication: BREAST CANCER STAGE III
     Dosage: SEE IMAGE
     Route: 041
     Dates: start: 20060817, end: 20060817
  2. ABRAXANE 100MG/VIAL [Suspect]
     Indication: BREAST CANCER STAGE III
     Dosage: SEE IMAGE
     Route: 041
     Dates: start: 20060907, end: 20060907

REACTIONS (7)
  - DRUG LEVEL INCREASED [None]
  - DRUG TOXICITY [None]
  - HEPATIC ENZYME INCREASED [None]
  - HEPATIC FUNCTION ABNORMAL [None]
  - PALMAR-PLANTAR ERYTHRODYSAESTHESIA SYNDROME [None]
  - PALPITATIONS [None]
  - TACHYCARDIA [None]
